FAERS Safety Report 7484622-X (Version None)
Quarter: 2011Q2

REPORT INFORMATION
  Report Type: 
  Country: None (occurrence: None)
  Receive Date: 20110517
  Receipt Date: 20110509
  Transmission Date: 20111010
  Serious: No
  Sender: FDA-Public Use
  Company Number: US-BIOGENIDEC-2011BI017976

PATIENT
  Age: 48 Year
  Sex: Female

DRUGS (3)
  1. AVONEX [Concomitant]
     Indication: MULTIPLE SCLEROSIS
     Route: 030
     Dates: start: 20081226
  2. AMPYRA [Concomitant]
     Dates: start: 20090101
  3. TYSABRI [Suspect]
     Indication: MULTIPLE SCLEROSIS
     Route: 042
     Dates: start: 20090424

REACTIONS (4)
  - STRESS [None]
  - PERONEAL NERVE PALSY [None]
  - MULTIPLE SCLEROSIS [None]
  - GASTRIC DISORDER [None]
